FAERS Safety Report 8461384-0 (Version None)
Quarter: 2012Q2

REPORT INFORMATION
  Report Type: 
  Country: None (occurrence: None)
  Receive Date: 20120625
  Receipt Date: 20120614
  Transmission Date: 20120825
  Serious: Yes (Other)
  Sender: FDA-Public Use
  Company Number: CA-JNJFOC-20120607560

PATIENT
  Sex: Male

DRUGS (3)
  1. ANTI-REJECTION DRUGS [Suspect]
     Indication: PRODUCT USED FOR UNKNOWN INDICATION
     Route: 065
  2. REMICADE [Suspect]
     Indication: ANKYLOSING SPONDYLITIS
     Route: 042
  3. REMICADE [Suspect]
     Route: 042
     Dates: start: 20120101

REACTIONS (4)
  - WHITE BLOOD CELL COUNT DECREASED [None]
  - CROHN'S DISEASE [None]
  - MUSCULOSKELETAL STIFFNESS [None]
  - HERPES ZOSTER [None]
